FAERS Safety Report 5258909-5 (Version None)
Quarter: 2007Q1

REPORT INFORMATION
  Report Type: 
  Country: None (occurrence: None)
  Receive Date: 20070305
  Receipt Date: 20070223
  Transmission Date: 20070707
  Serious: Yes (Life-Threatening, Hospitalization)
  Sender: FDA-Public Use
  Company Number: 2007SP002518

PATIENT
  Age: 6 Year
  Sex: Female
  Weight: 20.5 kg

DRUGS (4)
  1. PEG-INTRON [Suspect]
     Indication: BONE SARCOMA
     Dosage: 10 MCG; QW; SC
     Route: 058
     Dates: start: 20070123
  2. CISPLATIN [Suspect]
     Indication: BONE SARCOMA
     Dates: start: 20060518, end: 20061004
  3. DOXORUBICIN HYDROCHLORIDE [Suspect]
     Indication: BONE SARCOMA
     Dosage: 37.5 MG/M2; QD; IV
     Route: 042
     Dates: start: 20060518, end: 20061213
  4. METHOTREXATE [Suspect]
     Indication: BONE SARCOMA
     Dates: start: 20060608, end: 20070111

REACTIONS (24)
  - ABDOMINAL PAIN [None]
  - ALANINE AMINOTRANSFERASE INCREASED [None]
  - ANOREXIA [None]
  - ASPARTATE AMINOTRANSFERASE INCREASED [None]
  - BACK PAIN [None]
  - BIOPSY HEART ABNORMAL [None]
  - CONGESTIVE CARDIOMYOPATHY [None]
  - DRUG TOXICITY [None]
  - FATIGUE [None]
  - GENERAL PHYSICAL HEALTH DETERIORATION [None]
  - GRANULOCYTES ABNORMAL [None]
  - HAEMOGLOBIN DECREASED [None]
  - HEPATIC FUNCTION ABNORMAL [None]
  - HYPOKALAEMIA [None]
  - HYPONATRAEMIA [None]
  - HYPOTENSION [None]
  - METABOLIC ACIDOSIS [None]
  - NEUTROPHIL COUNT ABNORMAL [None]
  - PAIN [None]
  - PYREXIA [None]
  - RENAL FAILURE [None]
  - TACHYCARDIA [None]
  - VENTRICULAR DYSFUNCTION [None]
  - VOMITING [None]
